FAERS Safety Report 8127349-3 (Version None)
Quarter: 2012Q1

REPORT INFORMATION
  Report Type: 
  Country: None (occurrence: None)
  Receive Date: 20120210
  Receipt Date: 20120130
  Transmission Date: 20120608
  Serious: Yes (Other)
  Sender: FDA-Public Use
  Company Number: US-BRISTOL-MYERS SQUIBB COMPANY-16374100

PATIENT
  Age: 63 Year
  Sex: Male

DRUGS (1)
  1. WARFARIN SODIUM [Suspect]
     Indication: DEEP VEIN THROMBOSIS
     Dosage: STARTED APP. 2.5YRS AGO INTIALLY RECEIVED FOR 1 HYR THEN STOPPED STARTED WITH 59M/WEEK

REACTIONS (2)
  - BLUE TOE SYNDROME [None]
  - TRANSIENT ISCHAEMIC ATTACK [None]
